FAERS Safety Report 4761112-6 (Version None)
Quarter: 2005Q3

REPORT INFORMATION
  Report Type: 
  Country: None (occurrence: None)
  Receive Date: 20050901
  Receipt Date: 20050503
  Transmission Date: 20060218
  Serious: No
  Sender: FDA-Public Use
  Company Number: 2005FR-00242

PATIENT
  Age: 13 Year

DRUGS (5)
  1. FLUOXETINE [Suspect]
     Indication: DEPRESSION
     Dosage: 20-10 MG ORAL
     Route: 048
     Dates: start: 20040902, end: 20050113
  2. GAVISCON [Concomitant]
  3. HYDROGEN PEROXIDE SOLUTION [Concomitant]
  4. HYDROCORTISONE [Concomitant]
  5. AMOXICILLIN [Concomitant]

REACTIONS (1)
  - EPILEPSY [None]
